FAERS Safety Report 7744883 (Version 5)
Quarter: 2012Q4

REPORT INFORMATION
  Report Type: Report from Study
  Country: CO (occurrence: CO)
  Receive Date: 20101230
  Receipt Date: 20121030
  Transmission Date: 20130627
  Serious: Yes (Hospitalization, Other)
  Sender: FDA-Public Use
  Company Number: CO-AMGEN-QUU439145

PATIENT
  Age: 58 Year
  Sex: Female

DRUGS (23)
  1. ETANERCEPT [Suspect]
     Indication: RHEUMATOID ARTHRITIS
     Dosage: 50 mg, qwk
     Route: 058
     Dates: start: 200903, end: 20101031
  2. ETANERCEPT [Suspect]
     Dosage: 50 mg, qwk
     Route: 058
     Dates: start: 20120814
  3. ETANERCEPT [Suspect]
     Dosage: 50 mg, qwk
     Route: 058
     Dates: end: 20120822
  4. AMLODIPINE [Concomitant]
     Indication: HYPERTENSION
     Dosage: 5 mg, qd
     Route: 048
     Dates: start: 2008
  5. AMLODIPINE [Concomitant]
     Dosage: 5.0 mg, 1x/day
     Route: 048
     Dates: start: 2008
  6. HYDROCHLOROTHIAZIDE [Concomitant]
     Indication: HYPERTENSION
     Dosage: 25 mg, 1x/day
     Route: 048
  7. LOSARTAN [Concomitant]
     Indication: HYPERTENSION
     Dosage: 50 mg, 1x/day
     Route: 048
     Dates: start: 2010
  8. LOSARTAN [Concomitant]
     Dosage: 50 mg, 2x/day (each 12 hours)
     Route: 048
     Dates: start: 2010
  9. ARAVA [Concomitant]
     Indication: RHEUMATOID ARTHRITIS
     Dosage: 20 mg, 1x/day
     Route: 065
     Dates: start: 2006
  10. INSULIN [Concomitant]
     Indication: TYPE 2 DIABETES MELLITUS
     Dosage: 5 IU, 3x/day
     Route: 065
     Dates: start: 2001
  11. INSULIN [Concomitant]
     Dosage: 11 IU, 3x/day
  12. METFORMIN [Concomitant]
     Indication: TYPE 2 DIABETES MELLITUS
     Dosage: 850 mg, 3x/day
     Route: 065
  13. METFORMIN [Concomitant]
     Dosage: 500 mg, 2x/day (each 12 hours)
     Route: 048
  14. CALCITRIOL [Concomitant]
     Indication: SUPPLEMENTATION THERAPY
     Dosage: 0.25 mcg one a day orally
     Route: 065
     Dates: start: 2009
  15. CALCIUM CARBONATE [Concomitant]
     Indication: SUPPLEMENTATION THERAPY
     Dosage: UNK
     Route: 065
  16. NPH INSULIN [Concomitant]
     Indication: TYPE 2 DIABETES MELLITUS
     Dosage: 46 IU and 36IU daily
     Route: 065
     Dates: start: 2001
  17. PREDNISOLONE [Concomitant]
     Indication: RHEUMATOID ARTHRITIS
     Dosage: 5 mg, 1x/day
     Route: 048
     Dates: start: 2002
  18. ALENDRONATE SODIUM [Concomitant]
     Indication: OSTEOPOROSIS
     Dosage: 70 mg, UNK
     Route: 048
     Dates: start: 2010
  19. OMEPRAZOLE [Concomitant]
     Indication: DYSPEPSIA
     Dosage: 20 mg, UNK
     Dates: start: 2002
  20. OMEPRAZOLE [Concomitant]
     Indication: DYSPEPSIA
  21. SPIRONOLACTONE [Concomitant]
     Indication: BLOOD POTASSIUM ABNORMAL
     Dosage: UNK
     Route: 048
     Dates: start: 201205
  22. LOVASTATIN [Concomitant]
     Indication: HYPERTRIGLYCERIDAEMIA
     Dosage: 20 mg, 1x/day
     Route: 048
     Dates: start: 2008
  23. ASA [Concomitant]
     Indication: PROPHYLAXIS
     Dosage: 100 mg, 2x/day
     Route: 048
     Dates: start: 2006

REACTIONS (6)
  - Kidney infection [Recovered/Resolved]
  - Infected varicose vein [Recovering/Resolving]
  - Urinary tract infection [Recovered/Resolved]
  - Varicose ulceration [Not Recovered/Not Resolved]
  - Hypokalaemia [Unknown]
  - Fungal infection [Unknown]
